FAERS Safety Report 7178363-6 (Version None)
Quarter: 2010Q4

REPORT INFORMATION
  Report Type: 
  Country: None (occurrence: None)
  Receive Date: 20101220
  Receipt Date: 20101215
  Transmission Date: 20110411
  Serious: Yes (Other)
  Sender: FDA-Public Use
  Company Number: US-BAXTER-2010BH030216

PATIENT
  Age: 39 Year
  Sex: Male
  Weight: 65 kg

DRUGS (3)
  1. PROCAINAMIDE [Suspect]
     Indication: VENTRICULAR TACHYCARDIA
     Route: 065
  2. AMIODARONE HCL [Suspect]
     Indication: VENTRICULAR TACHYCARDIA
     Route: 065
  3. SOTALOL HCL [Suspect]
     Indication: VENTRICULAR TACHYCARDIA
     Route: 065

REACTIONS (1)
  - GRAFT DYSFUNCTION [None]
